FAERS Safety Report 16882964 (Version 1)
Quarter: 2019Q4

REPORT INFORMATION
  Report Type: Spontaneous
  Country: US (occurrence: US)
  Receive Date: 20191004
  Receipt Date: 20191004
  Transmission Date: 20200122
  Serious: No
  Sender: FDA-Public Use
  Company Number: US-P+L DEVELOPMENTS OF NEWYORK CORPORATION-2075283

PATIENT
  Sex: Female

DRUGS (1)
  1. MINOXIDIL TOPICAL SOLUTION [Suspect]
     Active Substance: MINOXIDIL
     Indication: ALOPECIA
     Route: 061

REACTIONS (6)
  - Skin irritation [Recovered/Resolved]
  - Skin burning sensation [Recovered/Resolved]
  - Product use issue [Unknown]
  - Product dropper issue [Unknown]
  - Erythema [Not Recovered/Not Resolved]
  - Condition aggravated [Recovered/Resolved]
